FAERS Safety Report 7942983-9 (Version None)
Quarter: 2011Q4

REPORT INFORMATION
  Report Type: 
  Country: None (occurrence: None)
  Receive Date: 20111128
  Receipt Date: 20111114
  Transmission Date: 20120403
  Serious: Yes (Death, Other)
  Sender: FDA-Public Use
  Company Number: HU-CELGENEUS-076-21880-11112194

PATIENT
  Sex: Female
  Weight: 56 kg

DRUGS (19)
  1. KALDYUM [Concomitant]
     Indication: ATRIAL FIBRILLATION
     Dosage: 600 MILLIGRAM
     Route: 048
     Dates: start: 20110924
  2. REFLUXON [Concomitant]
     Indication: GASTRITIS PROPHYLAXIS
     Dosage: 15 MILLIGRAM
     Route: 048
     Dates: start: 20110804
  3. REVLIMID [Suspect]
     Indication: MULTIPLE MYELOMA
     Dosage: 25 MILLIGRAM
     Route: 048
     Dates: start: 20110804, end: 20110824
  4. CONCOR [Concomitant]
     Indication: ATRIAL FIBRILLATION
     Dosage: 5 MILLIGRAM
     Route: 048
     Dates: start: 20100801
  5. REVLIMID [Suspect]
     Dosage: 25 MILLIGRAM
     Route: 048
     Dates: start: 20110901, end: 20111107
  6. SYNCUMAR [Concomitant]
     Indication: ATRIAL FIBRILLATION
     Dosage: .5 MILLIGRAM
     Route: 048
     Dates: start: 20110401
  7. CONCOR [Concomitant]
     Dosage: 2.5 MILLIGRAM
     Route: 048
     Dates: start: 20100801
  8. TRAMADOL HCL [Concomitant]
     Dosage: 150 MILLIGRAM
     Route: 048
     Dates: start: 20111027
  9. FUROSEMIDE [Concomitant]
     Indication: ATRIAL FIBRILLATION
     Dosage: 40 MILLIGRAM
     Route: 048
     Dates: start: 20110924
  10. DEXAMETHASONE [Suspect]
     Dosage: DOSE DECREASED
     Route: 065
  11. CITALOPRAM HYDROBROMIDE [Concomitant]
     Indication: DEPRESSION
     Dosage: 10 MILLIGRAM
     Route: 048
     Dates: start: 20111013
  12. CALCIUM CITRATE [Concomitant]
     Indication: OSTEOPOROSIS
     Dosage: 1000 MILLIGRAM
     Route: 048
     Dates: start: 20110804
  13. HERPESIN [Concomitant]
     Indication: ANTIVIRAL PROPHYLAXIS
     Dosage: 800 MILLIGRAM
     Route: 048
     Dates: start: 20110804
  14. SYNCUMAR [Concomitant]
     Indication: PULMONARY EMBOLISM
     Dosage: .5 MILLIGRAM
     Route: 048
     Dates: start: 20110804
  15. ZOMETA [Concomitant]
     Dosage: .1333 MILLIGRAM
     Route: 041
     Dates: start: 20110804
  16. DEXAMETHASONE [Suspect]
     Indication: MULTIPLE MYELOMA
     Route: 065
     Dates: start: 20110804, end: 20111103
  17. ARANESP [Concomitant]
     Indication: ANAEMIA
     Dosage: 23.8095 MICROGRAM
     Route: 058
     Dates: start: 20111027
  18. COLECALCIFEROL [Concomitant]
     Indication: OSTEOPOROSIS
     Dosage: 400 MILLIGRAM
     Route: 048
     Dates: start: 20110804
  19. ZOMETA [Concomitant]
     Indication: PROPHYLAXIS

REACTIONS (1)
  - SEPSIS [None]
